FAERS Safety Report 8372092-9 (Version None)
Quarter: 2012Q2

REPORT INFORMATION
  Report Type: 
  Country: None (occurrence: None)
  Receive Date: 20120520
  Receipt Date: 20120508
  Transmission Date: 20120825
  Serious: Yes (Other)
  Sender: FDA-Public Use
  Company Number: DE-BRISTOL-MYERS SQUIBB COMPANY-16600785

PATIENT
  Age: 40 Year
  Sex: Female

DRUGS (3)
  1. TETRACYCLINE [Suspect]
  2. ASPIRIN [Suspect]
  3. STREPTOMYCIN [Suspect]

REACTIONS (2)
  - SYSTEMIC LUPUS ERYTHEMATOSUS [None]
  - STEVENS-JOHNSON SYNDROME [None]
